FAERS Safety Report 16744075 (Version 1)
Quarter: 2019Q3

REPORT INFORMATION
  Report Type: Spontaneous
  Country: FR (occurrence: FR)
  Receive Date: 20190827
  Receipt Date: 20190827
  Transmission Date: 20191005
  Serious: Yes (Hospitalization, Other)
  Sender: FDA-Public Use
  Company Number: FR-AUROBINDO-AUR-APL-2019-055801

PATIENT

DRUGS (16)
  1. TRILEPTAL [Concomitant]
     Active Substance: OXCARBAZEPINE
     Indication: PRODUCT USED FOR UNKNOWN INDICATION
     Dosage: UNK
     Route: 048
  2. LINEZOLID. [Suspect]
     Active Substance: LINEZOLID
     Indication: SUPERINFECTION BACTERIAL
     Dosage: UNK
     Route: 042
     Dates: start: 20181018
  3. ARTESUNATE [Suspect]
     Active Substance: ARTESUNATE
     Indication: MALARIA
     Dosage: 180 MILLIGRAM, ONCE A DAY
     Route: 042
     Dates: start: 20181013, end: 20181016
  4. AMIKACINE [Suspect]
     Active Substance: AMIKACIN
     Indication: SUPERINFECTION BACTERIAL
     Dosage: UNK
     Route: 042
     Dates: start: 20181018
  5. INEXIUM [Concomitant]
     Active Substance: ESOMEPRAZOLE
     Indication: PRODUCT USED FOR UNKNOWN INDICATION
     Dosage: UNK
     Route: 048
  6. DOLIPRANE [Concomitant]
     Active Substance: ACETAMINOPHEN
     Indication: PRODUCT USED FOR UNKNOWN INDICATION
     Dosage: UNK
     Route: 048
  7. MEROPENEM. [Suspect]
     Active Substance: MEROPENEM
     Indication: SUPERINFECTION BACTERIAL
     Dosage: UNK
     Route: 042
     Dates: start: 20181018
  8. QUINIMAX [Suspect]
     Active Substance: CINCHONIDINE\CINCHONINE\QUINIDINE\QUININE
     Indication: MALARIA
     Dosage: UNK
     Route: 042
     Dates: start: 20181013, end: 20181013
  9. EURARTESIM [Suspect]
     Active Substance: ARTENIMOL\PIPERAQUINE PHOSPHATE
     Indication: MALARIA
     Dosage: 3 DOSAGE FORM, ONCE A DAY
     Route: 048
     Dates: start: 20181017, end: 20181017
  10. TAZOCILLINE [Suspect]
     Active Substance: PIPERACILLIN SODIUM\TAZOBACTAM SODIUM
     Indication: SUPERINFECTION BACTERIAL
     Dosage: UNK
     Route: 042
     Dates: start: 20181018
  11. MOVICOL [Concomitant]
     Active Substance: POLYETHYLENE GLYCOL 3350\POTASSIUM CHLORIDE\SODIUM BICARBONATE\SODIUM CHLORIDE
     Indication: PRODUCT USED FOR UNKNOWN INDICATION
     Dosage: UNK
     Route: 048
  12. ROCEPHINE [Suspect]
     Active Substance: CEFTRIAXONE SODIUM
     Indication: SUPERINFECTION BACTERIAL
     Dosage: UNK
     Route: 042
     Dates: start: 20181013, end: 20181018
  13. LOXAPAC [Concomitant]
     Active Substance: LOXAPINE
     Indication: PRODUCT USED FOR UNKNOWN INDICATION
     Dosage: UNK
     Route: 048
  14. OLANZAPINE. [Concomitant]
     Active Substance: OLANZAPINE
     Indication: PRODUCT USED FOR UNKNOWN INDICATION
     Dosage: UNK
     Route: 048
  15. HALDOL [Concomitant]
     Active Substance: HALOPERIDOL
     Indication: PRODUCT USED FOR UNKNOWN INDICATION
     Dosage: UNK
     Route: 048
  16. VALIUM [Concomitant]
     Active Substance: DIAZEPAM
     Indication: PRODUCT USED FOR UNKNOWN INDICATION
     Dosage: UNK
     Route: 048

REACTIONS (1)
  - Haemolytic anaemia [Recovering/Resolving]

NARRATIVE: CASE EVENT DATE: 20181020
